FAERS Safety Report 18487349 (Version 1)
Quarter: 2020Q4

REPORT INFORMATION
  Report Type: Spontaneous
  Country: FR (occurrence: FR)
  Receive Date: 20201110
  Receipt Date: 20201110
  Transmission Date: 20210114
  Serious: Yes (Other)
  Sender: FDA-Public Use
  Company Number: FR-MYLANLABS-2020M1092922

PATIENT
  Age: 46 Year
  Sex: Female
  Weight: 41 kg

DRUGS (1)
  1. MIDAZOLAM. [Suspect]
     Active Substance: MIDAZOLAM
     Indication: AGITATION
     Dosage: UNK
     Route: 042
     Dates: start: 20200525, end: 20200530

REACTIONS (3)
  - Apnoea [Recovered/Resolved]
  - Somnolence [Recovering/Resolving]
  - Bradypnoea [Recovered/Resolved]

NARRATIVE: CASE EVENT DATE: 20200526
